FAERS Safety Report 4826042-X (Version None)
Quarter: 2005Q4

REPORT INFORMATION
  Report Type: 
  Country: None (occurrence: None)
  Receive Date: 20051111
  Receipt Date: 20051026
  Transmission Date: 20060501
  Serious: Yes (Life-Threatening)
  Sender: FDA-Public Use
  Company Number: 2005AP05576

PATIENT
  Age: 73 Year
  Sex: Male

DRUGS (7)
  1. DIPRIVAN [Suspect]
     Indication: SEDATION
     Dosage: DOSING RATE: 5 ML/MIN FOR ONE MINUTE
     Route: 042
     Dates: start: 20051020
  2. DIPRIVAN [Suspect]
     Route: 042
     Dates: start: 20051020
  3. DIPRIVAN [Suspect]
     Dosage: DOSING RATE: 4 ML/MIN FOR ONE MINUTE
     Route: 042
     Dates: start: 20051020
  4. DIPRIVAN [Suspect]
     Dosage: DOSING RATE: 3 ML/MIN FOR ONE MINUTE
     Route: 042
     Dates: start: 20051020
  5. DIPRIVAN [Suspect]
     Dosage: SECOND VIAL STARTED
     Route: 042
     Dates: start: 20051020
  6. DIPRIVAN [Suspect]
     Route: 042
     Dates: start: 20051021
  7. DIAZEPAM [Concomitant]
     Indication: SEDATION

REACTIONS (2)
  - LOSS OF CONSCIOUSNESS [None]
  - RESPIRATORY ARREST [None]
